FAERS Safety Report 7450280-3 (Version None)
Quarter: 2011Q2

REPORT INFORMATION
  Report Type: 
  Country: None (occurrence: None)
  Receive Date: 20110429
  Receipt Date: 20110429
  Transmission Date: 20111010
  Serious: Yes (Other)
  Sender: FDA-Public Use
  Company Number: None

PATIENT
  Age: 49 Year
  Sex: Female
  Weight: 52.6173 kg

DRUGS (2)
  1. ALLEGRA D 24 HOUR [Suspect]
     Indication: HYPERSENSITIVITY
     Dosage: ONCE A DAY PO
     Route: 048
     Dates: start: 20110330, end: 20110428
  2. ALLEGRA D 24 HOUR [Suspect]
     Indication: SINUS CONGESTION
     Dosage: ONCE A DAY PO
     Route: 048
     Dates: start: 20110330, end: 20110428

REACTIONS (2)
  - NAUSEA [None]
  - PRODUCT TASTE ABNORMAL [None]
